FAERS Safety Report 12673124 (Version 1)
Quarter: 2016Q3

REPORT INFORMATION
  Report Type: Spontaneous
  Country: US (occurrence: US)
  Receive Date: 20160822
  Receipt Date: 20160822
  Transmission Date: 20161109
  Serious: Yes (Other)
  Sender: FDA-Public Use
  Company Number: US-ACORDA-ACO_127439_2016

PATIENT
  Age: 33 Year
  Sex: Female

DRUGS (1)
  1. AMPYRA [Suspect]
     Active Substance: DALFAMPRIDINE
     Indication: PRODUCT USED FOR UNKNOWN INDICATION
     Dosage: UNK
     Route: 065

REACTIONS (11)
  - Muscular weakness [Unknown]
  - Temporal lobe epilepsy [Unknown]
  - Allodynia [Unknown]
  - Visual impairment [Unknown]
  - Drug dose omission [None]
  - Optic neuritis [Unknown]
  - Hypoaesthesia [Unknown]
  - Aphasia [Unknown]
  - Drug ineffective [Unknown]
  - Influenza like illness [Unknown]
  - Memory impairment [Unknown]
